FAERS Safety Report 8912284 (Version 2)
Quarter: 2013Q1

REPORT INFORMATION
  Report Type: Report from Study
  Country: FR (occurrence: FR)
  Receive Date: 20121116
  Receipt Date: 20130102
  Transmission Date: 20140127
  Serious: Yes (Other)
  Sender: FDA-Public Use
  Company Number: FR-NOVOPROD-363499

PATIENT
  Age: 13 Year
  Sex: Female
  Weight: 63 kg

DRUGS (6)
  1. NORDITROPIN VIAL [Suspect]
     Indication: GROWTH HORMONE DEFICIENCY
     Dosage: 1.1 MG, QD
     Route: 058
     Dates: start: 20060413, end: 20120320
  2. NORDITROPIN VIAL [Suspect]
     Dosage: 1.1 MG, QD
     Route: 058
     Dates: start: 201209
  3. LEVOTHYROX [Concomitant]
     Dosage: 125 MCG, QD
     Dates: start: 20040930
  4. HYDROCORTISONE [Concomitant]
     Dosage: 4.3 MG, TID
     Route: 048
     Dates: start: 20040930
  5. DESMOPRESSINE [Concomitant]
     Dosage: 60 MCG, TID
     Route: 048
     Dates: start: 20040930
  6. ESTRADIOL [Concomitant]
     Dosage: 4 MCG, QD
     Route: 062
     Dates: start: 20100203

REACTIONS (1)
  - Craniopharyngioma [Recovering/Resolving]
